FAERS Safety Report 5668686-1 (Version None)
Quarter: 2008Q1

REPORT INFORMATION
  Report Type: 
  Country: None (occurrence: None)
  Receive Date: 20080312
  Receipt Date: 20080307
  Transmission Date: 20080703
  Serious: Yes (Other)
  Sender: FDA-Public Use
  Company Number: E2090-00403-SPO-DE

PATIENT
  Age: 2 Year
  Sex: Male
  Weight: 17.5 kg

DRUGS (4)
  1. ZONEGRAN [Suspect]
     Dosage: 25-0-25 MG, ORAL, 25-0-50 MG, ORAL
     Route: 048
     Dates: end: 20080101
  2. ZONEGRAN [Suspect]
     Dosage: 25-0-25 MG, ORAL, 25-0-50 MG, ORAL
     Route: 048
     Dates: end: 20080101
  3. KEPPRA [Concomitant]
  4. TIMOX (OXCARBAZEPINE) [Concomitant]

REACTIONS (3)
  - ABDOMINAL PAIN UPPER [None]
  - FEBRILE CONVULSION [None]
  - SLEEP DISORDER [None]
